FAERS Safety Report 6820869-0 (Version None)
Quarter: 2010Q3

REPORT INFORMATION
  Report Type: 
  Country: None (occurrence: None)
  Receive Date: 20100707
  Receipt Date: 20070724
  Transmission Date: 20110219
  Serious: No
  Sender: FDA-Public Use
  Company Number: US-PFIZER INC-2007060957

PATIENT
  Sex: Female
  Weight: 30.39 kg

DRUGS (1)
  1. ZOLOFT [Suspect]
     Indication: ANXIETY
     Dates: start: 20070118

REACTIONS (2)
  - ABNORMAL BEHAVIOUR [None]
  - INSOMNIA [None]
